FAERS Safety Report 8147184-X (Version None)
Quarter: 2012Q1

REPORT INFORMATION
  Report Type: 
  Country: None (occurrence: None)
  Receive Date: 20120218
  Receipt Date: 20110124
  Transmission Date: 20120608
  Serious: No
  Sender: FDA-Public Use
  Company Number: US-ALLERGAN-1101002US

PATIENT
  Sex: Female

DRUGS (2)
  1. BOTOX COSMETIC [Suspect]
     Indication: SKIN WRINKLING
     Dosage: UNK
     Dates: start: 20101111, end: 20101111
  2. JUVEDERM [Concomitant]
     Indication: SKIN WRINKLING
     Dosage: UNK
     Route: 023
     Dates: start: 20101111, end: 20101111

REACTIONS (1)
  - SWELLING FACE [None]
